FAERS Safety Report 5907336-3 (Version None)
Quarter: 2008Q4

REPORT INFORMATION
  Report Type: 
  Country: None (occurrence: None)
  Receive Date: 20081003
  Receipt Date: 20080925
  Transmission Date: 20090506
  Serious: Yes (Hospitalization, Other)
  Sender: FDA-Public Use
  Company Number: US-AMGEN-QUU309897

PATIENT
  Sex: Female

DRUGS (2)
  1. ENBREL [Suspect]
     Indication: RHEUMATOID ARTHRITIS
     Route: 058
     Dates: start: 20000401
  2. ENBREL [Suspect]
     Indication: PSORIASIS

REACTIONS (3)
  - CHOLELITHIASIS [None]
  - INFECTION [None]
  - RHEUMATOID ARTHRITIS [None]
